FAERS Safety Report 6930356-7 (Version None)
Quarter: 2010Q3

REPORT INFORMATION
  Report Type: 
  Country: None (occurrence: None)
  Receive Date: 20100818
  Receipt Date: 20100803
  Transmission Date: 20110219
  Serious: Yes (Hospitalization)
  Sender: FDA-Public Use
  Company Number: JP-ROCHE-719558

PATIENT
  Sex: Female

DRUGS (2)
  1. TOCILIZUMAB [Suspect]
     Indication: RHEUMATOID ARTHRITIS
     Dosage: ROUTE: SUBCUTANEOUS.
     Route: 058
     Dates: start: 20100720
  2. TOCILIZUMAB [Suspect]
     Route: 042
     Dates: start: 20100720

REACTIONS (1)
  - MENIERE'S DISEASE [None]
